FAERS Safety Report 5542401-4 (Version None)
Quarter: 2007Q4

REPORT INFORMATION
  Report Type: 
  Country: None (occurrence: None)
  Receive Date: 20071210
  Receipt Date: 20071130
  Transmission Date: 20080405
  Serious: Yes (Hospitalization, Other)
  Sender: FDA-Public Use
  Company Number: HQWYE091726OCT04

PATIENT
  Sex: Female

DRUGS (2)
  1. PREMPRO [Suspect]
  2. MEDROXYPROGESTERONE ACETATE [Suspect]

REACTIONS (3)
  - BREAST CANCER METASTATIC [None]
  - CONTRALATERAL BREAST CANCER [None]
  - METASTASES TO LYMPH NODES [None]
